FAERS Safety Report 6036606-6 (Version None)
Quarter: 2009Q1

REPORT INFORMATION
  Report Type: 
  Country: None (occurrence: None)
  Receive Date: 20090114
  Receipt Date: 20090106
  Transmission Date: 20090719
  Serious: Yes (Life-Threatening)
  Sender: FDA-Public Use
  Company Number: US-TYCO HEALTHCARE/MALLINCKRODT-T200900019

PATIENT
  Age: 29 Year
  Sex: Female

DRUGS (1)
  1. OPTIMARK [Suspect]
     Indication: NUCLEAR MAGNETIC RESONANCE IMAGING
     Dosage: 13 ML, SINGLE
     Route: 042
     Dates: start: 20090102, end: 20090102

REACTIONS (2)
  - HYPERSENSITIVITY [None]
  - LARYNGEAL OEDEMA [None]
